FAERS Safety Report 10101238 (Version 1)
Quarter: 2014Q2

REPORT INFORMATION
  Report Type: Spontaneous
  Country: US (occurrence: US)
  Receive Date: 20140424
  Receipt Date: 20140424
  Transmission Date: 20141212
  Serious: No
  Sender: FDA-Public Use
  Company Number: US-B.I. PHARMACEUTICALS,INC./RIDGEFIELD-2014-BI-17340BP

PATIENT
  Age: 56 Year
  Sex: Male
  Weight: 81 kg

DRUGS (5)
  1. DIGOXIN [Concomitant]
     Dosage: 0.25 MG
     Route: 048
  2. LISINOPRIL [Concomitant]
     Dosage: 40 MG
     Route: 048
  3. CARVEDILOL [Concomitant]
     Dosage: 50 MG
     Route: 048
  4. PRADAXA [Suspect]
     Indication: ATRIAL FIBRILLATION
     Dosage: 300 MG
     Route: 048
     Dates: start: 2011
  5. SIMVASTATIN [Concomitant]
     Dosage: 40 MG
     Route: 048

REACTIONS (1)
  - Vomiting [Not Recovered/Not Resolved]
